FAERS Safety Report 7796282-9 (Version None)
Quarter: 2011Q4

REPORT INFORMATION
  Report Type: 
  Country: None (occurrence: None)
  Receive Date: 20111004
  Receipt Date: 20110715
  Transmission Date: 20120403
  Serious: Yes (Hospitalization)
  Sender: FDA-Public Use
  Company Number: PHHO2011DE12406

PATIENT
  Sex: Female
  Weight: 81 kg

DRUGS (6)
  1. GLIMEPIRIDE [Concomitant]
     Indication: TYPE 2 DIABETES MELLITUS
     Dosage: 1.5 UNK, DAILY
  2. AMLODIPINE [Suspect]
     Indication: HYPERTENSION
     Dosage: 160 / 5 MG
     Route: 048
     Dates: start: 20110712
  3. ALISKIREN / HCTZ [Suspect]
     Indication: HYPERTENSION
     Dosage: 150/25 MG
     Route: 048
     Dates: start: 20110712
  4. METOPROLOL TARTRATE [Suspect]
     Dosage: 1/3 - 0 - 1/3
  5. ASPIRIN [Concomitant]
     Indication: PROPHYLAXIS
     Dosage: 100 MG, DAILY
  6. SIMVASTATIN [Concomitant]
     Indication: HYPERCHOLESTEROLAEMIA
     Dosage: 5 MG, DAILY

REACTIONS (1)
  - SINUS TACHYCARDIA [None]
